FAERS Safety Report 4946724-9 (Version None)
Quarter: 2006Q1

REPORT INFORMATION
  Report Type: 
  Country: None (occurrence: None)
  Receive Date: 20060317
  Receipt Date: 20050829
  Transmission Date: 20060701
  Serious: Yes (Hospitalization, Other)
  Sender: FDA-Public Use
  Company Number: US-MERCK-0508USA05042

PATIENT
  Age: 63 Year
  Sex: Male
  Weight: 91 kg

DRUGS (6)
  1. VIOXX [Suspect]
     Indication: PAIN
     Route: 048
     Dates: start: 19991123, end: 20010206
  2. VIOXX [Suspect]
     Route: 048
     Dates: start: 20010207, end: 20011201
  3. VIOXX [Suspect]
     Route: 048
     Dates: start: 20031222, end: 20040101
  4. VIOXX [Suspect]
     Indication: OSTEOARTHRITIS
     Route: 048
     Dates: start: 19991123, end: 20010206
  5. VIOXX [Suspect]
     Route: 048
     Dates: start: 20010207, end: 20011201
  6. VIOXX [Suspect]
     Route: 048
     Dates: start: 20031222, end: 20040101

REACTIONS (19)
  - BRADYCARDIA [None]
  - CEREBROVASCULAR ACCIDENT [None]
  - CONFUSIONAL STATE [None]
  - CORONARY ARTERY DISEASE [None]
  - DILATATION VENTRICULAR [None]
  - DIZZINESS [None]
  - ERECTILE DYSFUNCTION [None]
  - FALL [None]
  - HIATUS HERNIA [None]
  - LACUNAR INFARCTION [None]
  - LIPOPROTEIN (A) INCREASED [None]
  - NASOPHARYNGITIS [None]
  - PLEURAL FIBROSIS [None]
  - SICK SINUS SYNDROME [None]
  - SUPRAVENTRICULAR EXTRASYSTOLES [None]
  - SUPRAVENTRICULAR TACHYCARDIA [None]
  - SYNCOPE [None]
  - TRANSIENT ISCHAEMIC ATTACK [None]
  - VENTRICULAR EXTRASYSTOLES [None]
